FAERS Safety Report 16077003 (Version 1)
Quarter: 2019Q1

REPORT INFORMATION
  Report Type: Spontaneous
  Country: US (occurrence: US)
  Receive Date: 20190315
  Receipt Date: 20190315
  Transmission Date: 20190418
  Serious: Yes (Other)
  Sender: FDA-Public Use
  Company Number: US-ELI_LILLY_AND_COMPANY-US201903001479

PATIENT
  Sex: Male

DRUGS (1)
  1. HUMULIN N [Suspect]
     Active Substance: INSULIN HUMAN
     Indication: PRODUCT USED FOR UNKNOWN INDICATION
     Dosage: 42 IU, BID

REACTIONS (3)
  - Diabetic retinopathy [Unknown]
  - Eczema [Unknown]
  - Glaucoma [Unknown]

NARRATIVE: CASE EVENT DATE: 2017
